FAERS Safety Report 16069212 (Version 2)
Quarter: 2019Q1

REPORT INFORMATION
  Report Type: Spontaneous
  Country: AT (occurrence: AT)
  Receive Date: 20190313
  Receipt Date: 20190325
  Transmission Date: 20190418
  Serious: Yes (Other)
  Sender: FDA-Public Use
  Company Number: AT-ALLERGAN-1910767US

PATIENT
  Sex: Female

DRUGS (4)
  1. ESCITALOPRAM OXALATE - BP [Suspect]
     Active Substance: ESCITALOPRAM OXALATE
     Dosage: 0.5 DF, UNKNOWN
     Route: 065
     Dates: start: 20190226, end: 20190226
  2. ESCITALOPRAM OXALATE - BP [Suspect]
     Active Substance: ESCITALOPRAM OXALATE
     Dosage: 0.5 DF, UNKNOWN
     Route: 065
     Dates: start: 20190217, end: 20190217
  3. THROMBO ASS [Concomitant]
     Active Substance: ASPIRIN
     Indication: PRODUCT USED FOR UNKNOWN INDICATION
     Dosage: 0.5 DF, QD
     Route: 065
  4. ESCITALOPRAM OXALATE - BP [Suspect]
     Active Substance: ESCITALOPRAM OXALATE
     Indication: PRODUCT USED FOR UNKNOWN INDICATION
     Dosage: UNK UNK, UNKNOWN
     Route: 065
     Dates: end: 20190210

REACTIONS (25)
  - Restlessness [Recovered/Resolved]
  - Impaired work ability [Recovered/Resolved]
  - Limb discomfort [Recovered/Resolved]
  - Ear discomfort [Recovered/Resolved]
  - Somnolence [Recovered/Resolved]
  - Dyspnoea [Recovered/Resolved]
  - Dyspnoea [Recovered/Resolved]
  - Dizziness [Recovered/Resolved]
  - Irritability [Recovered/Resolved]
  - Impaired work ability [Not Recovered/Not Resolved]
  - Fatigue [Not Recovered/Not Resolved]
  - Restlessness [Not Recovered/Not Resolved]
  - Anxiety [Not Recovered/Not Resolved]
  - Limb discomfort [Recovered/Resolved]
  - Fatigue [Recovered/Resolved]
  - Disturbance in attention [Recovered/Resolved]
  - Drug withdrawal syndrome [Unknown]
  - Anxiety [Recovered/Resolved]
  - Trance [Recovered/Resolved]
  - Fatigue [Recovered/Resolved]
  - Nausea [Recovered/Resolved]
  - Myalgia [Recovered/Resolved]
  - Panic reaction [Recovered/Resolved]
  - Rhinitis [Recovered/Resolved]
  - Dizziness [Recovered/Resolved]

NARRATIVE: CASE EVENT DATE: 2019
